FAERS Safety Report 10646072 (Version 1)
Quarter: 2014Q4

REPORT INFORMATION
  Report Type: Other
  Country: DE (occurrence: DE)
  Receive Date: 20141211
  Receipt Date: 20141211
  Transmission Date: 20150529
  Serious: Yes (Congenital Anomaly)
  Sender: FDA-Public Use
  Company Number: DE-MYLANLABS-2014M1012454

PATIENT

DRUGS (3)
  1. CITALOPRAM [Suspect]
     Active Substance: CITALOPRAM HYDROBROMIDE
     Indication: PANIC ATTACK
     Dosage: 40 [MG/D ]/ NO TREATMENT BETWEEN WEEK 6 AND 19+2 DAYS
     Route: 064
     Dates: start: 20130913, end: 20140207
  2. CEFUROXIME. [Concomitant]
     Active Substance: CEFUROXIME
     Indication: INFECTION PROPHYLAXIS
     Route: 064
     Dates: start: 20140515, end: 20140515
  3. CENTRUM MATERNA [Concomitant]
     Indication: PROPHYLAXIS OF NEURAL TUBE DEFECT
     Dosage: 0.4 [MG/D ]
     Route: 064
     Dates: start: 20130913, end: 20140207

REACTIONS (2)
  - Exposure during pregnancy [Unknown]
  - Brain malformation [Not Recovered/Not Resolved]
